FAERS Safety Report 22651621 (Version 1)
Quarter: 2023Q2

REPORT INFORMATION
  Report Type: Spontaneous
  Country: US (occurrence: US)
  Receive Date: 20230628
  Receipt Date: 20230628
  Transmission Date: 20230721
  Serious: No
  Sender: FDA-Public Use
  Company Number: US-CTI BIOPHARMA-2023US03464

PATIENT

DRUGS (5)
  1. VONJO [Suspect]
     Active Substance: PACRITINIB
     Indication: Myelofibrosis
     Dosage: 200 MG, BID
     Route: 048
  2. ALLOPURINOL [Concomitant]
     Active Substance: ALLOPURINOL
  3. GAMUNEX [Concomitant]
     Active Substance: HUMAN IMMUNOGLOBULIN G
  4. REPAGLINIDE [Concomitant]
     Active Substance: REPAGLINIDE
  5. PRANDIN [Concomitant]
     Active Substance: REPAGLINIDE

REACTIONS (1)
  - Epistaxis [Not Recovered/Not Resolved]

NARRATIVE: CASE EVENT DATE: 20230312
